FAERS Safety Report 4642333-X (Version None)
Quarter: 2005Q2

REPORT INFORMATION
  Report Type: 
  Country: None (occurrence: None)
  Receive Date: 20050421
  Receipt Date: 20050421
  Transmission Date: 20051028
  Serious: Yes (Other)
  Sender: FDA-Public Use
  Company Number: None

PATIENT
  Age: 56 Year
  Weight: 74.8435 kg

DRUGS (2)
  1. BEXTRA [Suspect]
     Indication: FIBROMYALGIA
     Dosage: 20MG/10MG   DAILY IN AM   ORAL
     Route: 048
     Dates: start: 20050406, end: 20050407
  2. BEXTRA [Suspect]
     Indication: HEADACHE
     Dosage: 20MG/10MG   DAILY IN AM   ORAL
     Route: 048
     Dates: start: 20050406, end: 20050407

REACTIONS (5)
  - BURNING SENSATION [None]
  - RASH ERYTHEMATOUS [None]
  - RASH MACULAR [None]
  - SKIN EXFOLIATION [None]
  - URTICARIA [None]
